FAERS Safety Report 8963030 (Version 1)
Quarter: 2012Q4

REPORT INFORMATION
  Report Type: 
  Country: GB (occurrence: GB)
  Receive Date: 20121213
  Receipt Date: 20121213
  Transmission Date: 20130627
  Serious: Yes (Other)
  Sender: FDA-Public Use
  Company Number: GB-PFIZER INC-2012312869

PATIENT

DRUGS (1)
  1. TOVIAZ [Suspect]
     Indication: OVERACTIVE BLADDER
     Dosage: UNK

REACTIONS (3)
  - Cognitive disorder [Unknown]
  - Dry mouth [Unknown]
  - Constipation [Unknown]
